FAERS Safety Report 16084786 (Version 1)
Quarter: 2019Q1

REPORT INFORMATION
  Report Type: Spontaneous
  Country: US (occurrence: US)
  Receive Date: 20190318
  Receipt Date: 20190318
  Transmission Date: 20190418
  Serious: No
  Sender: FDA-Public Use
  Company Number: US-AVADEL SPECIALTY PHARMACEUTICALS, LLC-2019AVA00050

PATIENT
  Age: 77 Year
  Sex: Female
  Weight: 72.56 kg

DRUGS (12)
  1. LOSARTAN POTASSIUM. [Concomitant]
     Active Substance: LOSARTAN POTASSIUM
     Dosage: 50 MG, 1X/DAY
  2. VITAMIN A [Concomitant]
     Active Substance: VITAMIN A
  3. VITAMIN D [Concomitant]
     Active Substance: CHOLECALCIFEROL
  4. HYDROXYCHLOROQUINE [Concomitant]
     Active Substance: HYDROXYCHLOROQUINE
     Dosage: 200 MG, 1X/DAY AT NIGHT
  5. REQUIP [Concomitant]
     Active Substance: ROPINIROLE HYDROCHLORIDE
     Dosage: 0.5, 1X/DAY EVERY EVENING
  6. BABY ASPIRIN [Concomitant]
     Active Substance: ASPIRIN
     Dosage: UNK, EVERY 48 HOURS
  7. NOCTIVA [Suspect]
     Active Substance: DESMOPRESSIN ACETATE
     Indication: URINARY INCONTINENCE
     Dosage: 1.66 ?G (1 SPRAY IN EACH NOSTRIL), 1X/DAY
     Route: 045
     Dates: start: 20190112, end: 201901
  8. GLUCOSAMINE CHONDROITIN [Concomitant]
     Active Substance: CHONDROITIN SULFATE (BOVINE)\GLUCOSAMINE HYDROCHLORIDE
  9. RECLAST [Concomitant]
     Active Substance: ZOLEDRONIC ACID
     Dosage: 1 DOSAGE UNITS, 1X/YEAR
  10. UNSPECIFIED NSAIDS [Concomitant]
     Active Substance: UNSPECIFIED INGREDIENT
  11. FOLIC ACID. [Concomitant]
     Active Substance: FOLIC ACID
     Dosage: 1 MG, EVERY 48 HOURS
  12. RABEPRAZOLE [Concomitant]
     Active Substance: RABEPRAZOLE
     Dosage: 20 MG, 1X/DAY

REACTIONS (7)
  - Nasopharyngitis [Recovered/Resolved]
  - Headache [Recovered/Resolved]
  - Cystitis [Unknown]
  - Dizziness [Recovered/Resolved]
  - Performance status decreased [Recovered/Resolved]
  - Off label use [Recovered/Resolved]
  - Product storage error [Recovered/Resolved]

NARRATIVE: CASE EVENT DATE: 201901
